FAERS Safety Report 22639724 (Version 1)
Quarter: 2023Q2

REPORT INFORMATION
  Report Type: Spontaneous
  Country: US (occurrence: US)
  Receive Date: 20230626
  Receipt Date: 20230626
  Transmission Date: 20230721
  Serious: No
  Sender: FDA-Public Use
  Company Number: US-BAYER-2023A084759

PATIENT
  Age: 37 Year
  Sex: Female

DRUGS (1)
  1. MIRENA [Suspect]
     Active Substance: LEVONORGESTREL
     Indication: Contraception
     Dosage: 20?G/DAY
     Route: 015
     Dates: start: 20221221, end: 20230612

REACTIONS (3)
  - Device dislocation [Recovered/Resolved]
  - Genital haemorrhage [None]
  - Coital bleeding [None]

NARRATIVE: CASE EVENT DATE: 20230612
